FAERS Safety Report 4638139-8 (Version None)
Quarter: 2005Q2

REPORT INFORMATION
  Report Type: 
  Country: None (occurrence: None)
  Receive Date: 20050415
  Receipt Date: 20050329
  Transmission Date: 20051028
  Serious: Yes (Hospitalization)
  Sender: FDA-Public Use
  Company Number: USA050394317

PATIENT
  Age: 57 Year
  Sex: Male

DRUGS (1)
  1. HUMATROPE [Suspect]
     Dosage: 0.3 MG/ 1 DAY
     Dates: start: 20041101

REACTIONS (4)
  - INTERVERTEBRAL DISC DISORDER [None]
  - NERVE COMPRESSION [None]
  - PAIN [None]
  - PHARMACEUTICAL PRODUCT COMPLAINT [None]
